FAERS Safety Report 11917747 (Version 1)
Quarter: 2016Q1

REPORT INFORMATION
  Report Type: Spontaneous
  Country: US (occurrence: US)
  Receive Date: 20160114
  Receipt Date: 20160114
  Transmission Date: 20160526
  Serious: No
  Sender: FDA-Public Use
  Company Number: US-009507513-1601USA003492

PATIENT
  Age: 69 Year
  Sex: Male

DRUGS (1)
  1. KEYTRUDA [Suspect]
     Active Substance: PEMBROLIZUMAB
     Indication: METASTATIC CARCINOMA OF THE BLADDER
     Dosage: UNK
     Route: 042
     Dates: start: 20160108

REACTIONS (3)
  - Fatigue [Unknown]
  - Muscle twitching [Unknown]
  - Product use issue [Unknown]

NARRATIVE: CASE EVENT DATE: 20160108
